FAERS Safety Report 8477576-0 (Version None)
Quarter: 2012Q2

REPORT INFORMATION
  Report Type: 
  Country: None (occurrence: None)
  Receive Date: 20120629
  Receipt Date: 20120625
  Transmission Date: 20120825
  Serious: Yes (Hospitalization, Other)
  Sender: FDA-Public Use
  Company Number: US-PFIZER INC-2012152771

PATIENT
  Sex: Female
  Weight: 72.562 kg

DRUGS (3)
  1. LYRICA [Suspect]
     Indication: HERPES ZOSTER
     Dosage: UNK
     Route: 048
     Dates: start: 20060101
  2. METOPROLOL [Concomitant]
     Indication: HYPERTENSION
     Dosage: 50 MG, 2X/DAY
  3. LISINOPRIL [Concomitant]
     Dosage: UNK

REACTIONS (5)
  - HEADACHE [None]
  - BLOOD SODIUM DECREASED [None]
  - RENAL DISORDER [None]
  - BLOOD POTASSIUM DECREASED [None]
  - FATIGUE [None]
